FAERS Safety Report 25459014 (Version 1)
Quarter: 2025Q2

REPORT INFORMATION
  Report Type: Spontaneous
  Country: US (occurrence: US)
  Receive Date: 20250620
  Receipt Date: 20250620
  Transmission Date: 20250717
  Serious: No
  Sender: PANACEA BIOTEC PHARMA LIMITED
  Company Number: US-PBT-010531

PATIENT
  Age: 34 Year
  Sex: Male

DRUGS (1)
  1. RIZATRIPTAN [Suspect]
     Active Substance: RIZATRIPTAN
     Indication: Migraine
     Route: 048
     Dates: start: 2024

REACTIONS (4)
  - Neck pain [Recovering/Resolving]
  - Swelling [Recovering/Resolving]
  - Tenderness [Recovering/Resolving]
  - Feeling hot [Recovering/Resolving]

NARRATIVE: CASE EVENT DATE: 20250605
